FAERS Safety Report 9398261 (Version 1)
Quarter: 2013Q3

REPORT INFORMATION
  Report Type: Report from Study
  Country: US (occurrence: US)
  Receive Date: 20130712
  Receipt Date: 20130712
  Transmission Date: 20140515
  Serious: Yes (Hospitalization)
  Sender: FDA-Public Use
  Company Number: US-ABBOTT-13P-163-1114972-00

PATIENT
  Age: 21 Year
  Sex: Female
  Weight: 55.84 kg

DRUGS (4)
  1. HUMIRA [Suspect]
     Indication: COLITIS ULCERATIVE
     Dosage: ONE DOSE
     Dates: start: 201301, end: 201301
  2. HUMIRA [Suspect]
     Dosage: ONE DOSE
     Dates: start: 201303, end: 201303
  3. HUMIRA [Suspect]
     Dosage: 2 WEEKS AFTER 2ND 160 MG DOSE
     Dates: start: 2013, end: 2013
  4. HUMIRA [Suspect]
     Dosage: 4 WEEKS AFTER 2ND 160 MG DOSE
     Dates: start: 2013

REACTIONS (10)
  - Fistula [Not Recovered/Not Resolved]
  - Pain [Not Recovered/Not Resolved]
  - Abscess [Recovered/Resolved]
  - Localised intraabdominal fluid collection [Not Recovered/Not Resolved]
  - Infected fistula [Recovered/Resolved]
  - Infected fistula [Recovered/Resolved]
  - Pain [Not Recovered/Not Resolved]
  - Skin burning sensation [Not Recovered/Not Resolved]
  - Colitis [Not Recovered/Not Resolved]
  - Fatigue [Not Recovered/Not Resolved]
